FAERS Safety Report 13976211 (Version 2)
Quarter: 2017Q4

REPORT INFORMATION
  Report Type: Report from Study
  Country: None (occurrence: CO)
  Receive Date: 20170915
  Receipt Date: 20171006
  Transmission Date: 20180321
  Serious: Yes (Hospitalization)
  Sender: FDA-Public Use
  Company Number: CO-ABBVIE-17K-036-2101047-00

PATIENT
  Age: 64 Year
  Sex: Female
  Weight: 70 kg

DRUGS (1)
  1. HUMIRA [Suspect]
     Active Substance: ADALIMUMAB
     Indication: PSORIASIS
     Route: 058
     Dates: start: 20150904, end: 20170303

REACTIONS (8)
  - Dyskinesia [Recovered/Resolved]
  - Bradycardia [Unknown]
  - Diabetes mellitus [Recovering/Resolving]
  - Headache [Recovering/Resolving]
  - Seizure [Recovered/Resolved]
  - Somnolence [Recovered/Resolved]
  - Hair growth abnormal [Recovered/Resolved]
  - Blood test abnormal [Unknown]

NARRATIVE: CASE EVENT DATE: 201702
